FAERS Safety Report 9301106 (Version 1)
Quarter: 2013Q2

REPORT INFORMATION
  Report Type: Spontaneous
  Country: US (occurrence: US)
  Receive Date: 20130521
  Receipt Date: 20130521
  Transmission Date: 20140414
  Serious: No
  Sender: FDA-Public Use
  Company Number: US-PFIZER INC-2013154181

PATIENT
  Sex: Female

DRUGS (2)
  1. LYRICA [Suspect]
     Dosage: UNK, DAILY
     Dates: start: 2010
  2. CYMBALTA [Suspect]
     Dosage: UNK, DAILY

REACTIONS (4)
  - Dyspnoea [Unknown]
  - Rash [Unknown]
  - Swelling [Unknown]
  - Pain [Unknown]
